FAERS Safety Report 15192308 (Version 3)
Quarter: 2018Q3

REPORT INFORMATION
  Report Type: Spontaneous
  Country: US (occurrence: US)
  Receive Date: 20180724
  Receipt Date: 20180820
  Transmission Date: 20181010
  Serious: Yes (Death, Other)
  Sender: FDA-Public Use
  Company Number: US-009507513-1807USA010475

PATIENT
  Age: 49 Year
  Sex: Male

DRUGS (12)
  1. LEVOFLOXACIN. [Concomitant]
     Active Substance: LEVOFLOXACIN
  2. SERTRALINE HYDROCHLORIDE. [Concomitant]
     Active Substance: SERTRALINE HYDROCHLORIDE
  3. ALBUTEROL SULFATE. [Concomitant]
     Active Substance: ALBUTEROL SULFATE
  4. FENTANYL. [Concomitant]
     Active Substance: FENTANYL
  5. INTRON A [Suspect]
     Active Substance: INTERFERON ALFA-2B
     Indication: LIP AND/OR ORAL CAVITY CANCER
     Dosage: 300,000 IU (0.05 ML), TIW; (STRENGTH AND FORMULATION: 18MM UNIT /3ML MDV)
     Route: 023
  6. LIDOCAINE HYDROCHLORIDE. [Concomitant]
     Active Substance: LIDOCAINE HYDROCHLORIDE
  7. LIDOCAINE (+) PRILOCAINE [Concomitant]
  8. PROCHLORPERAZINE MALEATE. [Concomitant]
     Active Substance: PROCHLORPERAZINE MALEATE
  9. AZATHIOPRINE. [Concomitant]
     Active Substance: AZATHIOPRINE
  10. ONDANSETRON HYDROCHLORIDE. [Concomitant]
     Active Substance: ONDANSETRON HYDROCHLORIDE
  11. INTRON A [Suspect]
     Active Substance: INTERFERON ALFA-2B
     Indication: TONGUE NEOPLASM MALIGNANT STAGE UNSPECIFIED
  12. OXYCODONE HYDROCHLORIDE. [Concomitant]
     Active Substance: OXYCODONE HYDROCHLORIDE

REACTIONS (3)
  - Incorrect route of drug administration [Unknown]
  - Death [Fatal]
  - Product use in unapproved indication [Unknown]

NARRATIVE: CASE EVENT DATE: 20180711
